FAERS Safety Report 13456565 (Version 4)
Quarter: 2017Q2

REPORT INFORMATION
  Report Type: Report from Study
  Country: None (occurrence: CA)
  Receive Date: 20170418
  Receipt Date: 20170519
  Transmission Date: 20170830
  Serious: Yes (Death, Other)
  Sender: FDA-Public Use
  Company Number: CA-ABBVIE-17P-028-1946275-00

PATIENT
  Sex: Male

DRUGS (2)
  1. LUPRON DEPOT [Suspect]
     Active Substance: LEUPROLIDE ACETATE
     Indication: PROSTATE CANCER
     Route: 030
     Dates: start: 20160130
  2. CASODEX [Concomitant]
     Active Substance: BICALUTAMIDE
     Indication: PROSTATE CANCER
     Dates: start: 2016

REACTIONS (3)
  - Malaise [Not Recovered/Not Resolved]
  - Prostate cancer [Fatal]
  - Palliative care [Not Recovered/Not Resolved]
